FAERS Safety Report 8130499 (Version 4)
Quarter: 2012Q4

REPORT INFORMATION
  Report Type: Report from Study
  Country: US (occurrence: US)
  Receive Date: 20110912
  Receipt Date: 20120830
  Transmission Date: 20130627
  Serious: Yes (Hospitalization, Other)
  Sender: FDA-Public Use
  Company Number: US-ASTELLAS-2011US005558

PATIENT
  Sex: Female

DRUGS (2)
  1. ERLOTINIB TABLET [Suspect]
     Indication: LUNG NEOPLASM MALIGNANT
     Dosage: 150 mg, UID/QD
     Route: 048
     Dates: start: 20110824
  2. ERLOTINIB TABLET [Suspect]
     Dosage: 100 mg, UID/QD
     Route: 048
     Dates: start: 20110824

REACTIONS (7)
  - Transfusion [Unknown]
  - Transient ischaemic attack [Unknown]
  - Diarrhoea [Unknown]
  - Contusion [Unknown]
  - Epistaxis [Unknown]
  - Fatigue [Unknown]
  - Acne [Unknown]
